FAERS Safety Report 10585015 (Version 2)
Quarter: 2014Q4

REPORT INFORMATION
  Report Type: Spontaneous
  Country: FI (occurrence: FI)
  Receive Date: 20141114
  Receipt Date: 20141121
  Transmission Date: 20150529
  Serious: No
  Sender: FDA-Public Use
  Company Number: FI-MERCK-1411FIN005802

PATIENT
  Age: 49 Year
  Sex: Female

DRUGS (17)
  1. DIAPAM [Concomitant]
     Active Substance: DIAZEPAM
     Dosage: STRENGTH: 5MG AND 2.5MG; FREQUENCY: DAILY; TOTAL DAILY DOSE 7.5MG
     Route: 048
  2. SERETIDE [Concomitant]
     Active Substance: FLUTICASONE FUROATE\SALMETEROL XINAFOATE
     Dosage: STRENGTH: 50/250 MICROGRAM/DOSE; FREQUENCY: 1 DOSEX2; TOTAL DAILY DOSE: 100/500MICROGRAM
     Route: 055
  3. LITALGIN [Concomitant]
     Active Substance: PITOFENONE
     Dosage: STRENGTG: 500/2 MG/ML; FREQUENCY: 2ML AS NEEDED
  4. LOPID [Concomitant]
     Active Substance: GEMFIBROZIL
     Dosage: STRENGTH: 600MG; FREQUENCY: 1.5 TABLX1; TOTAL DAILY DOSE: 900MG
     Route: 048
  5. PREDNISOLON [Concomitant]
     Active Substance: PREDNISOLONE
     Dosage: STRENGTH: 5MG; FREQUENCY: 1X1; TOTAL DAILY DOSE: 5MG
     Route: 048
  6. SIRDALUD [Concomitant]
     Active Substance: TIZANIDINE
     Dosage: STRENGTH: 6MG; FREQUENCY 1X1; TOTAL DAILY DOSE: 6MG
     Route: 048
  7. HEINIX [Concomitant]
     Dosage: STRENGTH: 10MG; FREQUENCY: 1X2; TOTAL DAILY DOSE: 20MG
     Route: 048
  8. SOMAC [Concomitant]
     Active Substance: PANTOPRAZOLE SODIUM
     Dosage: STRENGTH: 40MG; FREQUENCY 1X2; TOTAL DAILY DOSE: 80MG.
     Route: 048
  9. JANUVIA [Suspect]
     Active Substance: SITAGLIPTIN PHOSPHATE
     Indication: DIABETES MELLITUS
     Dosage: UNK
     Route: 048
  10. SIMVASTATIN ACTAVIS [Concomitant]
     Active Substance: SIMVASTATIN
     Dosage: STRENGTH: 40MG; FREQUENCY: 1X1; TOTAL DAILY DOSE: 40MG
     Route: 048
  11. ARTELAC [Concomitant]
     Dosage: STRENGTH: 3.2 MG/ML; FREQUENCY: 1 DROPX6; TOTAL DAILY DOSE: 6 DROPS.
  12. LYRICA [Concomitant]
     Active Substance: PREGABALIN
     Dosage: STRENGTH: 150MG; TOTAL DAILY DOSE: 375MG
     Route: 048
  13. LEVEMIR [Concomitant]
     Active Substance: INSULIN DETEMIR
     Dosage: UNK
     Route: 058
  14. FEMILAR [Concomitant]
     Active Substance: CYPROTERONE ACETATE\ESTRADIOL VALERATE
     Dosage: STRENGTH: 1/1 + 2/2 MG; FREQUENCY: 1X1
     Route: 048
  15. LECROLYN [Concomitant]
     Dosage: STRENGTH: 40 MG/ML; FREQUENCY: 1 DROPX2; TOTAL DAILY DOSE: 2 DROPS.
  16. OXYCONTIN [Concomitant]
     Active Substance: OXYCODONE HYDROCHLORIDE
     Dosage: STRENGTH: 10MG; FREQUENCY: AS NEEDED.
     Route: 048
  17. SOLU-MEDROL [Concomitant]
     Active Substance: METHYLPREDNISOLONE SODIUM SUCCINATE
     Dosage: STRENGTH: 40MG; FREQUENCY: AS NEEDED.

REACTIONS (3)
  - Tongue blistering [Recovered/Resolved]
  - Oral pain [Recovered/Resolved]
  - Oral mucosal blistering [Recovered/Resolved]
